FAERS Safety Report 9806464 (Version 1)
Quarter: 2014Q1

REPORT INFORMATION
  Report Type: Spontaneous
  Country: US (occurrence: US)
  Receive Date: 20140109
  Receipt Date: 20140109
  Transmission Date: 20141002
  Serious: No
  Sender: FDA-Public Use
  Company Number: US-MALLINCKRODT-T201300073

PATIENT
  Age: 62 Year
  Sex: Female

DRUGS (1)
  1. OPTIRAY [Suspect]
     Indication: UROGRAM
     Dosage: 90 ML, SINGLE
     Route: 042
     Dates: start: 20130110, end: 20130110

REACTIONS (3)
  - Tongue disorder [Recovered/Resolved]
  - Erythema [Recovered/Resolved]
  - Pruritus [Recovered/Resolved]
